FAERS Safety Report 4958952-7 (Version None)
Quarter: 2006Q1

REPORT INFORMATION
  Report Type: 
  Country: None (occurrence: None)
  Receive Date: 20060324
  Receipt Date: 20060308
  Transmission Date: 20060701
  Serious: Yes (Congenital Anomaly, Other)
  Sender: FDA-Public Use
  Company Number: 8015494

PATIENT
  Sex: Male
  Weight: 3 kg

DRUGS (7)
  1. KEPPRA [Suspect]
     Indication: EPILEPSY
     Dosage: 200 MG /D TRP
     Route: 064
     Dates: start: 20050401, end: 20060113
  2. LAMOTRIGINE [Concomitant]
  3. PROTONIX [Concomitant]
  4. ZOLOFT [Concomitant]
  5. GLUCOPHAGE [Concomitant]
  6. PRENATAL VITAMINS [Concomitant]
  7. FOLIC ACID [Concomitant]

REACTIONS (4)
  - APGAR SCORE LOW [None]
  - DRUG EXPOSURE DURING PREGNANCY [None]
  - LABORATORY TEST ABNORMAL [None]
  - SINGLE UMBILICAL ARTERY [None]
